FAERS Safety Report 8009386-2 (Version None)
Quarter: 2011Q4

REPORT INFORMATION
  Report Type: 
  Country: None (occurrence: None)
  Receive Date: 20111227
  Receipt Date: 20111213
  Transmission Date: 20120403
  Serious: Yes (Hospitalization)
  Sender: FDA-Public Use
  Company Number: BR-SANOFI-AVENTIS-2011SA081763

PATIENT
  Sex: Female

DRUGS (1)
  1. LANTUS [Suspect]
     Indication: GESTATIONAL DIABETES
     Route: 065

REACTIONS (2)
  - HOSPITALISATION [None]
  - MATERNAL EXPOSURE DURING PREGNANCY [None]
